FAERS Safety Report 4979778-4 (Version None)
Quarter: 2006Q2

REPORT INFORMATION
  Report Type: 
  Country: None (occurrence: None)
  Receive Date: 20060421
  Receipt Date: 20060411
  Transmission Date: 20061013
  Serious: Yes (Life-Threatening)
  Sender: FDA-Public Use
  Company Number: NO-SANOFI-SYNTHELABO-A01200602789

PATIENT
  Sex: Female

DRUGS (1)
  1. STILNOCT [Suspect]
     Indication: INSOMNIA
     Dosage: 10 MG
     Route: 048
     Dates: start: 20060324, end: 20060324

REACTIONS (2)
  - ANAPHYLACTIC REACTION [None]
  - SKIN EXFOLIATION [None]
